FAERS Safety Report 24743535 (Version 1)
Quarter: 2024Q4

REPORT INFORMATION
  Report Type: Spontaneous
  Country: US (occurrence: US)
  Receive Date: 20241217
  Receipt Date: 20241217
  Transmission Date: 20250115
  Serious: Yes (Other)
  Sender: SANOFI AVENTIS
  Company Number: US-DialogSolutions-SAAVPROD-PI713218-C1

PATIENT
  Age: 74 Year
  Sex: Female

DRUGS (2)
  1. THYROGEN [Suspect]
     Active Substance: THYROTROPIN ALFA
     Indication: Follicular thyroid cancer
     Dosage: 0.9 MG
  2. THYROGEN [Suspect]
     Active Substance: THYROTROPIN ALFA
     Indication: Thyroid cancer metastatic

REACTIONS (4)
  - Thyrotoxic crisis [Recovering/Resolving]
  - Mental status changes [Recovering/Resolving]
  - Vertebral lesion [Recovering/Resolving]
  - Goitre [Recovering/Resolving]
